FAERS Safety Report 10227988 (Version 1)
Quarter: 2014Q2

REPORT INFORMATION
  Report Type: Spontaneous
  Country: US (occurrence: US)
  Receive Date: 20140610
  Receipt Date: 20140610
  Transmission Date: 20141212
  Serious: Yes (Hospitalization)
  Sender: FDA-Public Use
  Company Number: US-009507513-1406USA003536

PATIENT
  Age: 68 Year
  Sex: Female

DRUGS (4)
  1. SINEMET [Suspect]
     Indication: PARKINSON^S DISEASE
     Dosage: ONE AND ONE HALF Q3 HOURS FOR 6 DOSES
     Route: 048
  2. SINEMET [Suspect]
     Dosage: ONE Q3 HOURS FOR 6 DOSES
     Route: 048
  3. SINEMET CR [Suspect]
     Indication: PARKINSON^S DISEASE
  4. RASAGILINE [Suspect]
     Indication: PARKINSON^S DISEASE
     Dosage: 1 MG, QD

REACTIONS (1)
  - Dyskinesia [Recovered/Resolved]
